FAERS Safety Report 22088969 (Version 1)
Quarter: 2023Q1

REPORT INFORMATION
  Report Type: Spontaneous
  Country: FR (occurrence: FR)
  Receive Date: 20230313
  Receipt Date: 20230313
  Transmission Date: 20230417
  Serious: Yes (Other)
  Sender: FDA-Public Use
  Company Number: None

PATIENT
  Age: 77 Year
  Sex: Male

DRUGS (2)
  1. CAPECITABINE [Suspect]
     Active Substance: CAPECITABINE
     Indication: Neuroendocrine tumour of the lung
     Dosage: 3000 MILLIGRAM
     Route: 048
     Dates: start: 20220222, end: 20220502
  2. TEMOZOLOMIDE [Suspect]
     Active Substance: TEMOZOLOMIDE
     Indication: Neuroendocrine tumour of the lung
     Dosage: 300 MILLIGRAM
     Route: 048
     Dates: start: 20220222

REACTIONS (1)
  - Arteriospasm coronary [Not Recovered/Not Resolved]

NARRATIVE: CASE EVENT DATE: 20220502
